FAERS Safety Report 8492270 (Version 3)
Quarter: 2012Q4

REPORT INFORMATION
  Report Type: 
  Country: US (occurrence: US)
  Receive Date: 20120403
  Receipt Date: 20120927
  Transmission Date: 20130627
  Serious: Yes (Hospitalization, Congenital Anomaly)
  Sender: FDA-Public Use
  Company Number: US-GLAXOSMITHKLINE-A0863283A

PATIENT
  Age: 0 Year
  Sex: Female
  Weight: 3 kg

DRUGS (4)
  1. PAXIL [Suspect]
     Indication: DEPRESSION
     Dosage: 20MG Per day
     Route: 064
     Dates: start: 199910, end: 200312
  2. PRENATAL VITAMINS [Concomitant]
     Route: 064
  3. ALLEGRA [Concomitant]
     Route: 064
  4. NIFEREX [Concomitant]
     Route: 064

REACTIONS (12)
  - Ventricular septal defect [Unknown]
  - Patent ductus arteriosus [Unknown]
  - Pulmonary artery stenosis congenital [Unknown]
  - Right aortic arch [Unknown]
  - Atrial septal defect [Unknown]
  - Pulmonary arterial hypertension [Unknown]
  - Cardiac failure congestive [Unknown]
  - Failure to thrive [Unknown]
  - Williams syndrome [Unknown]
  - Arterial disorder [Unknown]
  - Dysmorphism [Unknown]
  - Foetal exposure during pregnancy [Unknown]
